FAERS Safety Report 8100293-3 (Version None)
Quarter: 2012Q1

REPORT INFORMATION
  Report Type: 
  Country: None (occurrence: None)
  Receive Date: 20120129
  Receipt Date: 20111124
  Transmission Date: 20120608
  Serious: No
  Sender: FDA-Public Use
  Company Number: US-ABBOTT-11P-163-0877413-00

PATIENT

DRUGS (3)
  1. HUMIRA [Suspect]
     Indication: ARTHROPATHY
  2. PREDNISONE TAB [Suspect]
     Indication: PRODUCT USED FOR UNKNOWN INDICATION
  3. HUMIRA [Suspect]
     Indication: PROPHYLAXIS

REACTIONS (2)
  - FATIGUE [None]
  - HYPERHIDROSIS [None]
